FAERS Safety Report 4300073-0 (Version None)
Quarter: 2004Q1

REPORT INFORMATION
  Report Type: 
  Country: None (occurrence: None)
  Receive Date: 20040219
  Receipt Date: 20040219
  Transmission Date: 20041129
  Serious: Yes (Hospitalization)
  Sender: FDA-Public Use
  Company Number: None

PATIENT
  Age: 73 Year
  Sex: Male
  Weight: 86.637 kg

DRUGS (9)
  1. COUMADIN [Suspect]
     Indication: CEREBROVASCULAR ACCIDENT
     Dosage: ALTERNATE DAYS
  2. ASPIRIN [Suspect]
     Indication: ARTHRITIS
     Dosage: DAILY
  3. ALLOPURINOL [Concomitant]
  4. ATENOLOL [Concomitant]
  5. GEMFIBROZIL [Concomitant]
  6. FUROSEMIDE [Concomitant]
  7. FOSINOPRIL SODIUM [Concomitant]
  8. CODEINE/APAP [Concomitant]
  9. METOLAZONE [Concomitant]

REACTIONS (5)
  - ASTHENIA [None]
  - DIZZINESS [None]
  - FAECES DISCOLOURED [None]
  - HYPOVOLAEMIA [None]
  - RECTAL EXAMINATION ABNORMAL [None]
